FAERS Safety Report 6783222-4 (Version None)
Quarter: 2010Q2

REPORT INFORMATION
  Report Type: 
  Country: None (occurrence: None)
  Receive Date: 20100622
  Receipt Date: 20100614
  Transmission Date: 20101027
  Serious: Yes (Other)
  Sender: FDA-Public Use
  Company Number: DE-JNJFOC-20100605122

PATIENT
  Age: 74 Year
  Sex: Female
  Weight: 56.5 kg

DRUGS (9)
  1. RISPERDAL [Suspect]
     Indication: DRUG USE FOR UNKNOWN INDICATION
     Route: 048
     Dates: start: 20100423, end: 20100429
  2. LORAZEPAM [Concomitant]
     Route: 048
     Dates: start: 20100423, end: 20100503
  3. LORAZEPAM [Concomitant]
     Route: 048
     Dates: start: 20100423, end: 20100503
  4. LEVOTHYROXINE SODIUM [Concomitant]
     Route: 048
     Dates: start: 20100423
  5. LEVOTHYROXINE SODIUM [Concomitant]
     Route: 048
     Dates: start: 20100423
  6. NORVASC [Concomitant]
     Route: 048
     Dates: start: 20100423
  7. MIRTAZAPINE [Concomitant]
     Route: 048
     Dates: start: 20100428
  8. MIRTAZAPINE [Concomitant]
     Route: 048
     Dates: start: 20100428
  9. EXELON [Concomitant]
     Route: 048
     Dates: start: 20100429, end: 20100505

REACTIONS (1)
  - VENOUS THROMBOSIS [None]
